FAERS Safety Report 22079289 (Version 1)
Quarter: 2023Q1

REPORT INFORMATION
  Report Type: Spontaneous
  Country: US (occurrence: US)
  Receive Date: 20230309
  Receipt Date: 20230309
  Transmission Date: 20230417
  Serious: No
  Sender: FDA-Public Use
  Company Number: US-HORIZON THERAPEUTICS-HZN-2021-001858

PATIENT

DRUGS (4)
  1. RAVICTI [Suspect]
     Active Substance: GLYCEROL PHENYLBUTYRATE
     Dosage: 2 ML, TID
     Route: 065
  2. KEPPRA [Concomitant]
     Active Substance: LEVETIRACETAM
  3. CITRULLINE [Concomitant]
     Active Substance: CITRULLINE
  4. L-CARNITINE [LEVOCARNITINE HYDROCHLORIDE] [Concomitant]

REACTIONS (1)
  - Product administration error [Unknown]
